FAERS Safety Report 11351306 (Version 1)
Quarter: 2015Q3

REPORT INFORMATION
  Report Type: Spontaneous
  Country: US (occurrence: US)
  Receive Date: 20150807
  Receipt Date: 20150807
  Transmission Date: 20151125
  Serious: No
  Sender: FDA-Public Use
  Company Number: US-JNJFOC-20150318235

PATIENT
  Age: 68 Year
  Sex: Female
  Weight: 59.88 kg

DRUGS (12)
  1. WOMENS ROGAINE [Suspect]
     Active Substance: MINOXIDIL
     Route: 061
  2. LEVOTHYROXINE. [Concomitant]
     Active Substance: LEVOTHYROXINE
     Indication: THYROID DISORDER
     Dosage: STRENGTH
     Route: 065
  3. COQ10 [Concomitant]
     Active Substance: UBIDECARENONE
     Indication: ROUTINE HEALTH MAINTENANCE
     Route: 065
  4. VITAMIN B12 [Concomitant]
     Active Substance: CYANOCOBALAMIN
     Indication: ROUTINE HEALTH MAINTENANCE
     Route: 065
  5. WOMENS ROGAINE [Suspect]
     Active Substance: MINOXIDIL
     Indication: ALOPECIA
     Route: 061
     Dates: start: 201412
  6. ESTRADIOL. [Concomitant]
     Active Substance: ESTRADIOL
     Indication: HORMONE REPLACEMENT THERAPY
     Route: 065
  7. RED YEAST RICE EXTRACT [Concomitant]
     Indication: BLOOD CHOLESTEROL
     Route: 065
  8. METFORMIN [Concomitant]
     Active Substance: METFORMIN HYDROCHLORIDE
     Indication: DIABETES MELLITUS
     Route: 065
  9. MULTIVITAMINS [Concomitant]
     Active Substance: VITAMINS
     Indication: ROUTINE HEALTH MAINTENANCE
     Route: 065
  10. TURMERIC [Concomitant]
     Active Substance: TURMERIC
     Indication: ARTHRITIS
     Route: 065
  11. LISINOPRIL. [Concomitant]
     Active Substance: LISINOPRIL
     Indication: BLOOD PRESSURE MEASUREMENT
     Route: 065
  12. BIOTIN [Concomitant]
     Active Substance: BIOTIN
     Route: 065

REACTIONS (2)
  - Application site pain [Not Recovered/Not Resolved]
  - Application site scab [Not Recovered/Not Resolved]
